FAERS Safety Report 18533136 (Version 1)
Quarter: 2020Q4

REPORT INFORMATION
  Report Type: Spontaneous
  Country: SV (occurrence: SV)
  Receive Date: 20201123
  Receipt Date: 20201123
  Transmission Date: 20210114
  Serious: Yes (Death, Other)
  Sender: FDA-Public Use
  Company Number: NVSC2020SV311527

PATIENT
  Age: 9 Year
  Sex: Female

DRUGS (1)
  1. GLIVEC [Suspect]
     Active Substance: IMATINIB MESYLATE
     Indication: ACUTE LYMPHOCYTIC LEUKAEMIA
     Dosage: 3 DF
     Route: 065

REACTIONS (4)
  - Platelet count decreased [Unknown]
  - Death [Fatal]
  - Dyspnoea [Unknown]
  - Cellulitis [Unknown]

NARRATIVE: CASE EVENT DATE: 20201118
